FAERS Safety Report 8070604-6 (Version None)
Quarter: 2012Q1

REPORT INFORMATION
  Report Type: 
  Country: None (occurrence: None)
  Receive Date: 20120125
  Receipt Date: 20120119
  Transmission Date: 20120608
  Serious: Yes (Hospitalization)
  Sender: FDA-Public Use
  Company Number: PHEH2011US011956

PATIENT
  Sex: Male

DRUGS (1)
  1. EXJADE [Suspect]
     Indication: IRON OVERLOAD
     Dosage: 1500 MG, DAILY
     Route: 048
     Dates: start: 20060330

REACTIONS (6)
  - BLOOD PRESSURE DIASTOLIC DECREASED [None]
  - BONE PAIN [None]
  - DEHYDRATION [None]
  - COUGH [None]
  - BLOOD PRESSURE SYSTOLIC INCREASED [None]
  - SICKLE CELL ANAEMIA WITH CRISIS [None]
